FAERS Safety Report 20654815 (Version 1)
Quarter: 2022Q1

REPORT INFORMATION
  Report Type: Spontaneous
  Country: BR (occurrence: BR)
  Receive Date: 20220330
  Receipt Date: 20220330
  Transmission Date: 20220424
  Serious: Yes (Other)
  Sender: FDA-Public Use
  Company Number: BR-TAKEDA-2022TUS020368

PATIENT
  Sex: Male

DRUGS (4)
  1. DEXILANT [Suspect]
     Active Substance: DEXLANSOPRAZOLE
     Indication: Product used for unknown indication
     Dosage: UNK
     Route: 065
  2. NIMESULIDE [Concomitant]
     Active Substance: NIMESULIDE
     Dosage: UNK
     Route: 065
  3. DOMPERIDONE [Concomitant]
     Active Substance: DOMPERIDONE
     Dosage: 10 MILLIGRAM, TID
     Route: 065
  4. SUCRAFILM [Concomitant]
     Dosage: 2 GRAM, Q12H
     Route: 065

REACTIONS (11)
  - Peptic ulcer [Unknown]
  - Ulcer [Unknown]
  - Gastritis [Unknown]
  - Polyp [Unknown]
  - Therapy interrupted [Unknown]
  - Impaired quality of life [Unknown]
  - Malaise [Unknown]
  - Sleep disorder [Unknown]
  - Gastrooesophageal reflux disease [Unknown]
  - Pain [Unknown]
  - Anxiety [Unknown]
